FAERS Safety Report 19946899 (Version 1)
Quarter: 2021Q4

REPORT INFORMATION
  Report Type: Spontaneous
  Country: CN (occurrence: CN)
  Receive Date: 20211012
  Receipt Date: 20211012
  Transmission Date: 20220303
  Serious: Yes (Other)
  Sender: FDA-Public Use
  Company Number: CN-BAXTER-2021BAX028974

PATIENT
  Age: 49 Year
  Sex: Female
  Weight: 60 kg

DRUGS (6)
  1. CYCLOPHOSPHAMIDE [Suspect]
     Active Substance: CYCLOPHOSPHAMIDE
     Indication: Breast cancer female
     Dosage: CYCLOPHOSPHAMIDE FOR INJECTION 1.0G + 0.9% NORMAL SALINE 100ML
     Route: 041
     Dates: start: 20200922, end: 20200922
  2. CYCLOPHOSPHAMIDE [Suspect]
     Active Substance: CYCLOPHOSPHAMIDE
     Dosage: DOSE RE-INTRODUCED
     Route: 041
  3. EPIRUBICIN HYDROCHLORIDE [Suspect]
     Active Substance: EPIRUBICIN HYDROCHLORIDE
     Indication: Breast cancer female
     Dosage: EPIRUBICIN HYDROCHLORIDE FOR INJECTION 70 MG + 0.9% NORMAL SALINE 100ML. D1, D2.
     Route: 041
     Dates: start: 20200922, end: 20200923
  4. EPIRUBICIN HYDROCHLORIDE [Suspect]
     Active Substance: EPIRUBICIN HYDROCHLORIDE
     Dosage: DOSE RE-INTRODUCED
     Route: 041
  5. SODIUM CHLORIDE [Suspect]
     Active Substance: SODIUM CHLORIDE
     Indication: Medication dilution
     Dosage: CYCLOPHOSPHAMIDE FOR INJECTION 1.0G + 0.9% NORMAL SALINE 100ML, EPIRUBICIN HYDROCHLORIDE FOR INJECTI
     Route: 041
     Dates: start: 20200922, end: 20200922
  6. SODIUM CHLORIDE [Suspect]
     Active Substance: SODIUM CHLORIDE
     Dosage: DOSE RE-INTRODUCED
     Route: 041

REACTIONS (2)
  - Gastrointestinal disorder [Recovering/Resolving]
  - Decreased appetite [Unknown]

NARRATIVE: CASE EVENT DATE: 20200922
